FAERS Safety Report 10487844 (Version 3)
Quarter: 2015Q1

REPORT INFORMATION
  Report Type: Report from Study
  Country: US (occurrence: US)
  Receive Date: 20141001
  Receipt Date: 20150227
  Transmission Date: 20150720
  Serious: Yes (Other)
  Sender: FDA-Public Use
  Company Number: US-ABBVIE-13P-163-1183476-00

PATIENT
  Sex: Male

DRUGS (1)
  1. HUMIRA [Suspect]
     Active Substance: ADALIMUMAB
     Indication: MATERNAL EXPOSURE TIMING UNSPECIFIED
     Route: 064

REACTIONS (8)
  - Motor developmental delay [Recovering/Resolving]
  - Foetal exposure during pregnancy [Unknown]
  - Cerebral haemorrhage foetal [Recovered/Resolved]
  - Hydrocephalus [Recovered/Resolved]
  - Cerebral ventricle dilatation [Recovered/Resolved]
  - Strabismus [Not Recovered/Not Resolved]
  - Perinatal stroke [Recovered/Resolved]
  - Coordination abnormal [Not Recovered/Not Resolved]

NARRATIVE: CASE EVENT DATE: 20140825
